FAERS Safety Report 9390258 (Version 1)
Quarter: 2013Q3

REPORT INFORMATION
  Report Type: Spontaneous
  Country: US (occurrence: US)
  Receive Date: 20130708
  Receipt Date: 20130708
  Transmission Date: 20140515
  Serious: Yes (Hospitalization, Other)
  Sender: FDA-Public Use
  Company Number: US-ELI_LILLY_AND_COMPANY-US201307000418

PATIENT
  Age: 45 Year
  Sex: Female

DRUGS (3)
  1. HUMULIN 30% REGULAR, 70% NPH [Suspect]
     Indication: TYPE 1 DIABETES MELLITUS
     Dosage: UNK
     Dates: start: 1995, end: 2003
  2. HUMULIN LENTE [Suspect]
     Indication: TYPE 1 DIABETES MELLITUS
  3. HUMULIN REGULAR [Concomitant]

REACTIONS (3)
  - Convulsion [Unknown]
  - Hypoglycaemia [Unknown]
  - Drug ineffective [Recovered/Resolved]
